FAERS Safety Report 15348189 (Version 2)
Quarter: 2019Q3

REPORT INFORMATION
  Report Type: Spontaneous
  Country: JP (occurrence: JP)
  Receive Date: 20180904
  Receipt Date: 20190807
  Transmission Date: 20191004
  Serious: Yes (Hospitalization, Disabling, Other)
  Sender: FDA-Public Use
  Company Number: JP-JNJFOC-20180902670

PATIENT
  Age: 61 Year
  Sex: Male

DRUGS (16)
  1. ARTIST [Concomitant]
     Active Substance: CARVEDILOL
     Route: 048
     Dates: start: 201305
  2. VICTOZA [Concomitant]
     Active Substance: LIRAGLUTIDE
     Indication: TYPE 2 DIABETES MELLITUS
     Route: 051
     Dates: start: 20170926, end: 20171127
  3. SUREPOST [Concomitant]
     Active Substance: REPAGLINIDE
     Route: 048
     Dates: start: 201305
  4. SUREPOST [Concomitant]
     Active Substance: REPAGLINIDE
     Route: 048
     Dates: start: 201305
  5. LANTUS [Concomitant]
     Active Substance: INSULIN GLARGINE
     Indication: TYPE 2 DIABETES MELLITUS
     Route: 051
     Dates: start: 201305, end: 20161031
  6. LANTUS [Concomitant]
     Active Substance: INSULIN GLARGINE
     Route: 051
     Dates: start: 20161101
  7. MAGLAX [Concomitant]
     Active Substance: MAGNESIUM OXIDE
     Indication: PROPHYLAXIS
     Route: 048
     Dates: start: 201305
  8. RENIVACE [Concomitant]
     Active Substance: ENALAPRIL
     Route: 048
     Dates: start: 201305
  9. LASIX [Concomitant]
     Active Substance: FUROSEMIDE
     Route: 048
     Dates: start: 201305, end: 20180122
  10. VICTOZA [Concomitant]
     Active Substance: LIRAGLUTIDE
     Route: 051
     Dates: start: 20171128
  11. METHYCOBAL [Concomitant]
     Active Substance: METHYLCOBALAMIN
     Indication: PROPHYLAXIS
     Route: 048
     Dates: start: 201305
  12. ALDACTONE [Concomitant]
     Active Substance: SPIRONOLACTONE
     Route: 048
     Dates: start: 201402
  13. CANAGLIFLOZIN [Suspect]
     Active Substance: CANAGLIFLOZIN
     Indication: TYPE 2 DIABETES MELLITUS
     Route: 048
     Dates: start: 20160404, end: 20180419
  14. SEIBULE [Concomitant]
     Active Substance: MIGLITOL
     Indication: TYPE 2 DIABETES MELLITUS
     Route: 048
     Dates: start: 201305
  15. ALOSENN [Concomitant]
     Indication: PROPHYLAXIS
     Route: 048
     Dates: start: 201305
  16. SUREPOST [Concomitant]
     Active Substance: REPAGLINIDE
     Indication: TYPE 2 DIABETES MELLITUS
     Route: 048

REACTIONS (6)
  - Atrial fibrillation [Recovering/Resolving]
  - Limb injury [Unknown]
  - Nail injury [Unknown]
  - Gangrene [Recovered/Resolved with Sequelae]
  - Cardiac failure congestive [Recovering/Resolving]
  - Angina pectoris [Recovering/Resolving]

NARRATIVE: CASE EVENT DATE: 20180122
